FAERS Safety Report 17798081 (Version 2)
Quarter: 2021Q1

REPORT INFORMATION
  Report Type: Other
  Country: CA (occurrence: CA)
  Receive Date: 20200518
  Receipt Date: 20210209
  Transmission Date: 20210419
  Serious: Yes (Other)
  Sender: FDA-Public Use
  Company Number: CA-APOTEX-2019AP013452

PATIENT
  Age: 55 Year
  Sex: Female
  Weight: 48 kg

DRUGS (1)
  1. APO?TRAZODONE [Suspect]
     Active Substance: TRAZODONE HYDROCHLORIDE
     Indication: INSOMNIA
     Dosage: 100 MG, QD
     Route: 048

REACTIONS (2)
  - Blepharospasm [Recovered/Resolved]
  - Suicidal ideation [Recovered/Resolved]
